FAERS Safety Report 5378130-X (Version None)
Quarter: 2007Q3

REPORT INFORMATION
  Report Type: 
  Country: None (occurrence: None)
  Receive Date: 20070705
  Receipt Date: 20070626
  Transmission Date: 20080115
  Serious: Yes (Hospitalization, Other)
  Sender: FDA-Public Use
  Company Number: PHBS2007JP01915

PATIENT
  Age: 78 Year
  Sex: Male
  Weight: 54 kg

DRUGS (6)
  1. DIOVAN [Suspect]
     Indication: HYPERTENSION
     Route: 048
     Dates: start: 20070101, end: 20070123
  2. NORVASC [Concomitant]
     Dosage: 5 MG, UNK
     Route: 048
     Dates: start: 20070101
  3. DIGOSIN [Concomitant]
     Indication: ARRHYTHMIA
  4. GASTER [Concomitant]
     Indication: GASTRITIS
     Dosage: 20 MG, UNK
     Route: 048
     Dates: start: 20070101
  5. SUNRYTHM [Concomitant]
     Indication: ARRHYTHMIA
     Dosage: 150 MG/DAY
     Route: 048
     Dates: start: 20070101
  6. TAMBOCOR [Concomitant]
     Indication: ARRHYTHMIA
     Dosage: 50 MG, UNK
     Route: 048
     Dates: start: 20070101

REACTIONS (2)
  - DEPRESSED LEVEL OF CONSCIOUSNESS [None]
  - HYPONATRAEMIA [None]
